FAERS Safety Report 7437492-X (Version None)
Quarter: 2011Q2

REPORT INFORMATION
  Report Type: 
  Country: None (occurrence: None)
  Receive Date: 20110426
  Receipt Date: 20110415
  Transmission Date: 20111010
  Serious: Yes (Hospitalization)
  Sender: FDA-Public Use
  Company Number: PHHY2011AT32102

PATIENT
  Age: 55 Year
  Sex: Female

DRUGS (8)
  1. ZITHROMAX [Concomitant]
  2. DICLOFENAC [Concomitant]
  3. IBUPROFEN [Concomitant]
  4. MAALOX                                  /NET/ [Concomitant]
  5. ASPIRIN [Concomitant]
  6. XYZAL [Concomitant]
  7. DIDEGAT [Concomitant]
  8. CITALOPRAM [Suspect]
     Indication: DEPRESSION
     Dosage: 10 MG, QD
     Route: 048

REACTIONS (2)
  - HEPATITIS CHOLESTATIC [None]
  - CHOLESTASIS [None]
